FAERS Safety Report 25866669 (Version 1)
Quarter: 2025Q3

REPORT INFORMATION
  Report Type: Report from Study
  Country: EU (occurrence: EU)
  Receive Date: 20250930
  Receipt Date: 20250930
  Transmission Date: 20251021
  Serious: Yes (Hospitalization, Other)
  Sender: ABBVIE
  Company Number: EU-ABBVIE-6479875

PATIENT
  Age: 60 Year
  Sex: Male
  Weight: 95 kg

DRUGS (4)
  1. RINVOQ [Suspect]
     Active Substance: UPADACITINIB
     Indication: Rheumatoid arthritis
     Route: 048
     Dates: start: 20200617, end: 202504
  2. RAMIPRIL [Concomitant]
     Active Substance: RAMIPRIL
     Indication: Blood pressure increased
     Route: 048
     Dates: start: 2013
  3. BISOPROLOL [Concomitant]
     Active Substance: BISOPROLOL
     Indication: Blood pressure increased
     Route: 048
  4. PANTOPRAZOLE [Concomitant]
     Active Substance: PANTOPRAZOLE
     Indication: Gastrointestinal disorder prophylaxis
     Route: 048
     Dates: start: 2013

REACTIONS (7)
  - Fall [Recovered/Resolved]
  - Dyspnoea [Recovering/Resolving]
  - Sinusitis [Recovering/Resolving]
  - Bronchitis [Recovering/Resolving]
  - Loss of consciousness [Recovered/Resolved]
  - Pulmonary fibrosis [Not Recovered/Not Resolved]
  - Dizziness [Recovered/Resolved]

NARRATIVE: CASE EVENT DATE: 20250401
